FAERS Safety Report 5704513-1 (Version None)
Quarter: 2008Q2

REPORT INFORMATION
  Report Type: 
  Country: None (occurrence: None)
  Receive Date: 20080414
  Receipt Date: 20080408
  Transmission Date: 20081010
  Serious: Yes (Hospitalization)
  Sender: FDA-Public Use
  Company Number: JP-MERCK-0804USA02074

PATIENT
  Age: 50 Year
  Sex: Male

DRUGS (3)
  1. ADALAT [Concomitant]
     Indication: HYPERTENSION
     Route: 048
     Dates: start: 20030101
  2. COZAAR [Concomitant]
     Route: 048
     Dates: start: 20030101, end: 20080201
  3. HYZAAR [Suspect]
     Route: 048
     Dates: start: 20080201, end: 20080301

REACTIONS (2)
  - BLOOD PRESSURE SYSTOLIC DECREASED [None]
  - CEREBRAL INFARCTION [None]
